FAERS Safety Report 11897839 (Version 1)
Quarter: 2016Q1

REPORT INFORMATION
  Report Type: Spontaneous
  Country: CA (occurrence: CA)
  Receive Date: 20160108
  Receipt Date: 20160108
  Transmission Date: 20160526
  Serious: Yes (Hospitalization)
  Sender: FDA-Public Use
  Company Number: CA-TEVA-622694ACC

PATIENT
  Age: 60 Year
  Sex: Male
  Weight: 84 kg

DRUGS (8)
  1. BRILINTA [Concomitant]
     Active Substance: TICAGRELOR
  2. NAPROSYN [Concomitant]
     Active Substance: NAPROXEN
  3. COPAXONE [Suspect]
     Active Substance: GLATIRAMER ACETATE
     Indication: MULTIPLE SCLEROSIS
     Dosage: 20 MILLIGRAM DAILY;
     Route: 058
  4. D-TABS [Concomitant]
     Active Substance: CHOLECALCIFEROL
  5. PANTOLOC [Concomitant]
     Active Substance: PANTOPRAZOLE SODIUM
  6. VENLAFAXINE XR [Concomitant]
     Active Substance: VENLAFAXINE HYDROCHLORIDE
  7. ASPIRIN. [Concomitant]
     Active Substance: ASPIRIN
  8. CRESTOR [Concomitant]
     Active Substance: ROSUVASTATIN CALCIUM

REACTIONS (6)
  - Syncope [Recovered/Resolved]
  - Injection site pain [Recovered/Resolved]
  - Rash pruritic [Recovered/Resolved]
  - Dizziness [Recovered/Resolved]
  - Eye oedema [Recovered/Resolved]
  - Injection site erythema [Recovered/Resolved]
